FAERS Safety Report 24824745 (Version 1)
Quarter: 2025Q1

REPORT INFORMATION
  Report Type: Spontaneous
  Country: DK (occurrence: DK)
  Receive Date: 20250109
  Receipt Date: 20250109
  Transmission Date: 20250408
  Serious: Yes (Hospitalization, Other)
  Sender: AMGEN
  Company Number: DK-AMGEN-DNKSP2024256927

PATIENT

DRUGS (1)
  1. NEUPOGEN [Suspect]
     Active Substance: FILGRASTIM
     Indication: Haematopoietic stem cell mobilisation
     Dosage: 10 MICROGRAM/KILOGRAM, QD
     Route: 058

REACTIONS (16)
  - Leukopenia [Unknown]
  - Thrombocytopenia [Unknown]
  - Haemorrhage [Unknown]
  - Pyrexia [Unknown]
  - Infection [Unknown]
  - Complication associated with device [Unknown]
  - Seizure like phenomena [Recovered/Resolved]
  - Stomatitis [Unknown]
  - Nausea [Unknown]
  - Bone pain [Unknown]
  - Staphylococcal infection [Unknown]
  - Streptococcal infection [Unknown]
  - Pneumococcal infection [Unknown]
  - Escherichia infection [Unknown]
  - Klebsiella infection [Unknown]
  - Device related infection [Unknown]
